FAERS Safety Report 9212476 (Version 2)
Quarter: 2013Q2

REPORT INFORMATION
  Report Type: Spontaneous
  Country: US (occurrence: US)
  Receive Date: 20130404
  Receipt Date: 20130611
  Transmission Date: 20140414
  Serious: No
  Sender: FDA-Public Use
  Company Number: US-TEVA-395143USA

PATIENT
  Sex: Female

DRUGS (5)
  1. FENTORA [Suspect]
     Indication: CROHN^S DISEASE
     Dosage: Q4H PRN
     Route: 048
  2. FENTORA [Suspect]
     Indication: PAIN
     Route: 048
  3. FENTORA [Suspect]
     Route: 048
  4. METHOTREXATE [Concomitant]
  5. MARINOL [Concomitant]

REACTIONS (2)
  - Pain [Recovered/Resolved]
  - Off label use [Unknown]
